FAERS Safety Report 8537769-0 (Version None)
Quarter: 2012Q3

REPORT INFORMATION
  Report Type: 
  Country: None (occurrence: None)
  Receive Date: 20120725
  Receipt Date: 20120719
  Transmission Date: 20120928
  Serious: Yes (Other)
  Sender: FDA-Public Use
  Company Number: BR-PFIZER INC-2012174824

PATIENT
  Age: 22 Year
  Sex: Female
  Weight: 62 kg

DRUGS (1)
  1. PROVERA [Suspect]
     Indication: UTERINE HAEMORRHAGE
     Dosage: TWO TABLETS (OF 20MG) DAILY
     Route: 048
     Dates: start: 20120501

REACTIONS (2)
  - EYE IRRITATION [None]
  - BLINDNESS TRANSIENT [None]
